FAERS Safety Report 8853091 (Version 1)
Quarter: 2012Q4

REPORT INFORMATION
  Report Type: 
  Country: US (occurrence: US)
  Receive Date: 20121022
  Receipt Date: 20121022
  Transmission Date: 20130627
  Serious: No
  Sender: FDA-Public Use
  Company Number: US-009507513-1210USA007468

PATIENT
  Age: 18 Year
  Sex: Female
  Weight: 53.61 kg

DRUGS (2)
  1. IMPLANON [Suspect]
     Indication: CONTRACEPTION
     Dosage: 1 rod up to 3 years
     Route: 059
     Dates: start: 20120820
  2. ALBUTEROL [Concomitant]
     Dosage: last used about 2 weeks ago, prn

REACTIONS (4)
  - Implant site mass [Unknown]
  - Implant site pain [Unknown]
  - Implant site pain [Unknown]
  - Implant site pain [Unknown]
